FAERS Safety Report 4515550-7 (Version None)
Quarter: 2004Q4

REPORT INFORMATION
  Report Type: 
  Country: None (occurrence: None)
  Receive Date: 20041126
  Receipt Date: 20041111
  Transmission Date: 20050328
  Serious: Yes (Other)
  Sender: FDA-Public Use
  Company Number: 2004091676

PATIENT
  Sex: Male

DRUGS (2)
  1. FELDENE [Suspect]
     Indication: ARTHRITIS
     Dosage: 20 MG (20 MG, 1 IN 1 D)
  2. BEXTRA [Suspect]
     Indication: ARTHRITIS
     Dosage: 10 MG
     Dates: end: 20041110

REACTIONS (5)
  - FOOT OPERATION [None]
  - GASTRIC DISORDER [None]
  - HEADACHE [None]
  - KNEE OPERATION [None]
  - PROSTATIC OPERATION [None]
